FAERS Safety Report 13702267 (Version 1)
Quarter: 2017Q2

REPORT INFORMATION
  Report Type: Report from Study
  Country: None (occurrence: US)
  Receive Date: 20170629
  Receipt Date: 20170629
  Transmission Date: 20170830
  Serious: No
  Sender: FDA-Public Use
  Company Number: US-IPSEN BIOPHARMACEUTICALS, INC.-2015-5692

PATIENT
  Sex: Male
  Weight: 27 kg

DRUGS (6)
  1. INCRELEX [Suspect]
     Active Substance: MECASERMIN
     Indication: BODY HEIGHT BELOW NORMAL
     Dosage: 115 MCG/KG
     Route: 058
     Dates: start: 20141102
  2. PULMIAVYAR INHALER [Concomitant]
     Indication: PRODUCT USED FOR UNKNOWN INDICATION
     Dosage: NOT REPORTED
     Route: 065
  3. FLOVENT [Concomitant]
     Active Substance: FLUTICASONE PROPIONATE
     Indication: PRODUCT USED FOR UNKNOWN INDICATION
     Dosage: NOT REPORTED
     Route: 065
  4. QVAR INHALER [Concomitant]
     Indication: PRODUCT USED FOR UNKNOWN INDICATION
     Dosage: NOT REPORTED
     Route: 065
  5. INCRELEX [Suspect]
     Active Substance: MECASERMIN
     Indication: PRODUCT USE IN UNAPPROVED INDICATION
     Dosage: 115 MCG/KG
     Route: 058
     Dates: start: 20150401, end: 20150515
  6. ENZYME CREAM [Concomitant]
     Indication: PRODUCT USED FOR UNKNOWN INDICATION
     Dosage: NOT REPORTED
     Route: 065

REACTIONS (5)
  - Cough [Unknown]
  - Weight decreased [Recovering/Resolving]
  - Vomiting [None]
  - Anxiety [None]
  - Drug administration error [Unknown]

NARRATIVE: CASE EVENT DATE: 2015
